FAERS Safety Report 9728035 (Version 1)
Quarter: 2013Q4

REPORT INFORMATION
  Report Type: Spontaneous
  Country: FR (occurrence: None)
  Receive Date: 20131127
  Receipt Date: 20131127
  Transmission Date: 20140711
  Serious: Yes (Hospitalization)
  Sender: FDA-Public Use
  Company Number: 2028509

PATIENT
  Age: 73 Year
  Sex: Male

DRUGS (7)
  1. CARBOPLATIN [Suspect]
     Indication: TRANSITIONAL CELL CARCINOMA
     Route: 042
     Dates: start: 20121212
  2. CARBOPLATIN [Suspect]
     Indication: METASTASES TO LUNG
     Route: 042
     Dates: start: 20121212
  3. CARBOPLATIN [Suspect]
     Indication: METASTASES TO SKIN
     Route: 042
     Dates: start: 20121212
  4. GEMCITABINE HYDROCHLORIDE [Suspect]
     Indication: TRANSITIONAL CELL CARCINOMA
     Route: 042
  5. GEMCITABINE HYDROCHLORIDE [Suspect]
     Indication: METASTASES TO LUNG
     Route: 042
  6. GEMCITABINE HYDROCHLORIDE [Suspect]
     Indication: METASTASES TO SKIN
     Route: 042
  7. CISPLATINE [Concomitant]

REACTIONS (2)
  - Neutropenia [None]
  - Thrombosis in device [None]
